FAERS Safety Report 21207047 (Version 1)
Quarter: 2022Q3

REPORT INFORMATION
  Report Type: Spontaneous
  Country: US (occurrence: US)
  Receive Date: 20220812
  Receipt Date: 20220812
  Transmission Date: 20221026
  Serious: Yes (Other)
  Sender: FDA-Public Use
  Company Number: US-MYLANLABS-2022M1085092

PATIENT
  Age: 43 Year
  Sex: Male

DRUGS (2)
  1. CLOZAPINE [Suspect]
     Active Substance: CLOZAPINE
     Indication: Schizoaffective disorder
     Dosage: 500 MILLIGRAM, QD
     Route: 065
  2. CLOZAPINE [Suspect]
     Active Substance: CLOZAPINE
     Dosage: INITIALLY DOSE REDUCED AND THEN DISCONTINUED
     Route: 065

REACTIONS (3)
  - Hydronephrosis [Unknown]
  - Gastrointestinal hypomotility [Unknown]
  - Bladder disorder [Unknown]
